FAERS Safety Report 17001730 (Version 2)
Quarter: 2019Q4

REPORT INFORMATION
  Report Type: Spontaneous
  Country: US (occurrence: US)
  Receive Date: 20191106
  Receipt Date: 20191115
  Transmission Date: 20200122
  Serious: No
  Sender: FDA-Public Use
  Company Number: NVSC2019US024961

PATIENT
  Age: 60 Year
  Sex: Male

DRUGS (6)
  1. BACLOFEN. [Suspect]
     Active Substance: BACLOFEN
     Indication: GLOSSOPHARYNGEAL NEURALGIA
     Route: 065
  2. DULOXETINE. [Suspect]
     Active Substance: DULOXETINE
     Indication: GLOSSOPHARYNGEAL NEURALGIA
     Route: 065
  3. PHENYTOIN. [Suspect]
     Active Substance: PHENYTOIN
     Indication: GLOSSOPHARYNGEAL NEURALGIA
     Route: 065
  4. CARBAMAZEPINE. [Suspect]
     Active Substance: CARBAMAZEPINE
     Indication: GLOSSOPHARYNGEAL NEURALGIA
     Dosage: UNK
     Route: 065
  5. OXCARBAZEPINE. [Suspect]
     Active Substance: OXCARBAZEPINE
     Indication: GLOSSOPHARYNGEAL NEURALGIA
     Route: 065
  6. GABAPENTIN. [Suspect]
     Active Substance: GABAPENTIN
     Indication: GLOSSOPHARYNGEAL NEURALGIA
     Route: 065

REACTIONS (2)
  - Treatment failure [Unknown]
  - Hypersensitivity [Unknown]
